FAERS Safety Report 6782005-9 (Version None)
Quarter: 2010Q2

REPORT INFORMATION
  Report Type: 
  Country: None (occurrence: None)
  Receive Date: 20100621
  Receipt Date: 20100611
  Transmission Date: 20101027
  Serious: Yes (Hospitalization)
  Sender: FDA-Public Use
  Company Number: A0864556A

PATIENT
  Age: 58 Year
  Sex: Male

DRUGS (6)
  1. EPIVIR [Suspect]
     Indication: HIV INFECTION
     Dosage: 30MG TWICE PER DAY
     Route: 048
     Dates: start: 19950101
  2. ZERIT [Concomitant]
  3. VIRAMUNE [Concomitant]
  4. LISINOPRIL AND HYDROCHLOROTHIAZIDE [Concomitant]
  5. COUMADIN [Concomitant]
  6. XALATAN [Concomitant]

REACTIONS (10)
  - ABDOMINAL DISCOMFORT [None]
  - ARTERIAL DISORDER [None]
  - ARTHRITIS [None]
  - COUGH [None]
  - DEEP VEIN THROMBOSIS [None]
  - NEUROPATHY PERIPHERAL [None]
  - PERIPHERAL ARTERIAL OCCLUSIVE DISEASE [None]
  - PULMONARY EMBOLISM [None]
  - SKIN LESION [None]
  - THROMBOSIS [None]
